FAERS Safety Report 7285466-4 (Version None)
Quarter: 2011Q1

REPORT INFORMATION
  Report Type: 
  Country: None (occurrence: None)
  Receive Date: 20110121
  Receipt Date: 20091015
  Transmission Date: 20110831
  Serious: No
  Sender: FDA-Public Use
  Company Number: AE 2009-137

PATIENT
  Age: 49 Year
  Sex: Female

DRUGS (1)
  1. FAZACLO ODT [Suspect]
     Indication: SCHIZOPHRENIA, PARANOID TYPE
     Dosage: 700 MG DAILY PO
     Route: 048
     Dates: start: 20090401

REACTIONS (2)
  - PSYCHOTIC BEHAVIOUR [None]
  - PARANOIA [None]
